FAERS Safety Report 25975483 (Version 3)
Quarter: 2025Q4

REPORT INFORMATION
  Report Type: Spontaneous
  Country: CA (occurrence: CA)
  Receive Date: 20251029
  Receipt Date: 20251223
  Transmission Date: 20260118
  Serious: Yes (Hospitalization)
  Sender: PFIZER
  Company Number: CA-PFIZER INC-202500212272

PATIENT
  Age: 68 Year
  Sex: Male

DRUGS (1)
  1. ABRILADA [Suspect]
     Active Substance: ADALIMUMAB-AFZB
     Indication: Crohn^s disease
     Dosage: INDUCTION 160MG WEEK 0, 80MG WEEK 2 THEN MAINT. 40MG EVERY 2 WEEKS STARTING WEEK 4
     Route: 058
     Dates: start: 20220810

REACTIONS (1)
  - Renal disorder [Not Recovered/Not Resolved]
